FAERS Safety Report 4401451-1 (Version None)
Quarter: 2004Q3

REPORT INFORMATION
  Report Type: 
  Country: None (occurrence: None)
  Receive Date: 20040907
  Receipt Date: 20040510
  Transmission Date: 20050211
  Serious: No
  Sender: FDA-Public Use
  Company Number: US-BRISTOL-MYERS SQUIBB COMPANY-12583191

PATIENT
  Age: 71 Year
  Sex: Female

DRUGS (1)
  1. COUMADIN [Suspect]
     Indication: PROPHYLAXIS

REACTIONS (3)
  - DIARRHOEA [None]
  - NAUSEA [None]
  - VOMITING [None]
